FAERS Safety Report 4814658-6 (Version None)
Quarter: 2005Q4

REPORT INFORMATION
  Report Type: 
  Country: None (occurrence: None)
  Receive Date: 20051028
  Receipt Date: 20041213
  Transmission Date: 20060501
  Serious: No
  Sender: FDA-Public Use
  Company Number: US-GLAXOSMITHKLINE-A0537102A

PATIENT
  Age: 77 Year
  Sex: Female

DRUGS (7)
  1. ADVAIR DISKUS 100/50 [Suspect]
     Indication: ASTHMA
     Dosage: 1PUFF TWICE PER DAY
     Route: 055
  2. UNSPECIFIED MEDICATION [Concomitant]
  3. ALPHAGAN [Concomitant]
  4. AVAPRO [Concomitant]
  5. LASIX [Concomitant]
  6. POTASSIUM [Concomitant]
  7. CELEBREX [Concomitant]

REACTIONS (1)
  - DYSPHONIA [None]
